FAERS Safety Report 19226362 (Version 1)
Quarter: 2021Q2

REPORT INFORMATION
  Report Type: Spontaneous
  Country: CN (occurrence: CN)
  Receive Date: 20210506
  Receipt Date: 20210506
  Transmission Date: 20210717
  Serious: Yes (Hospitalization, Other)
  Sender: FDA-Public Use
  Company Number: NVSC2021CN094407

PATIENT
  Age: 63 Year
  Sex: Male
  Weight: 80 kg

DRUGS (6)
  1. AMLODIPINE BESYLATE. [Concomitant]
     Active Substance: AMLODIPINE BESYLATE
     Indication: BLOOD PRESSURE INCREASED
     Dosage: UNK
     Route: 065
  2. ZYKADIA [Suspect]
     Active Substance: CERITINIB
     Indication: PRODUCT USED FOR UNKNOWN INDICATION
     Dosage: 450 MG, QD
     Route: 048
     Dates: start: 20180114, end: 201902
  3. SELUMETINIB. [Suspect]
     Active Substance: SELUMETINIB
     Indication: PRODUCT USED FOR UNKNOWN INDICATION
     Dosage: 450 MG, QD
     Route: 048
     Dates: start: 20190114
  4. ASPARTIC ACID [Concomitant]
     Active Substance: ASPARTIC ACID
     Indication: PROPHYLAXIS
     Dosage: UNK (BEFORE BREAKFAST AND DINNER)
     Route: 065
  5. ASPIRIN. [Concomitant]
     Active Substance: ASPIRIN
     Indication: PRODUCT USED FOR UNKNOWN INDICATION
     Dosage: UNK
     Route: 065
  6. ZYKADIA [Suspect]
     Active Substance: CERITINIB
     Dosage: 300 UNK
     Route: 065

REACTIONS (6)
  - Rash [Unknown]
  - Type 2 diabetes mellitus [Unknown]
  - Drug-induced liver injury [Recovered/Resolved]
  - Pruritus [Unknown]
  - Diarrhoea [Recovering/Resolving]
  - Dermatitis [Unknown]

NARRATIVE: CASE EVENT DATE: 20190214
